FAERS Safety Report 8510401 (Version 2)
Quarter: 2013Q3

REPORT INFORMATION
  Report Type: Spontaneous
  Country: US (occurrence: US)
  Receive Date: 20120413
  Receipt Date: 20130726
  Transmission Date: 20140515
  Serious: Yes (Other)
  Sender: FDA-Public Use
  Company Number: US-ROCHE-784576

PATIENT
  Age: 17 Year
  Sex: Male
  Weight: 72.64 kg

DRUGS (2)
  1. ACCUTANE [Suspect]
     Indication: ACNE
     Route: 065
     Dates: start: 20000320, end: 20000915
  2. ACCUTANE [Suspect]
     Route: 065
     Dates: start: 20011031, end: 20020220

REACTIONS (7)
  - Inflammatory bowel disease [Unknown]
  - Crohn^s disease [Unknown]
  - Stress [Unknown]
  - Colitis ulcerative [Unknown]
  - Depression [Unknown]
  - Irritable bowel syndrome [Unknown]
  - Dry eye [Unknown]
